FAERS Safety Report 18132172 (Version 2)
Quarter: 2020Q3

REPORT INFORMATION
  Report Type: Report from Study
  Country: None (occurrence: IL)
  Receive Date: 20200811
  Receipt Date: 20200916
  Transmission Date: 20201103
  Serious: Yes (Hospitalization, Other)
  Sender: FDA-Public Use
  Company Number: IL-ABBVIE-17K-082-2126219-00

PATIENT
  Age: 64 Year
  Sex: Female

DRUGS (2)
  1. HUMIRA [Suspect]
     Active Substance: ADALIMUMAB
     Indication: PSORIASIS
     Route: 058
     Dates: start: 20170723, end: 2018
  2. SKYRIZI [Suspect]
     Active Substance: RISANKIZUMAB-RZAA
     Indication: PSORIASIS
     Route: 058
     Dates: start: 20200806

REACTIONS (13)
  - Large intestine perforation [Recovering/Resolving]
  - Postoperative wound infection [Unknown]
  - Lack of injection site rotation [Not Recovered/Not Resolved]
  - Purulence [Unknown]
  - Psoriasis [Not Recovered/Not Resolved]
  - Alopecia [Not Recovered/Not Resolved]
  - Hip arthroplasty [Recovered/Resolved]
  - Skin burning sensation [Unknown]
  - Skin exfoliation [Unknown]
  - Post procedural inflammation [Unknown]
  - Drug ineffective [Not Recovered/Not Resolved]
  - Hernia [Unknown]
  - Abdominal pain upper [Unknown]

NARRATIVE: CASE EVENT DATE: 2017
